FAERS Safety Report 19001777 (Version 1)
Quarter: 2021Q1

REPORT INFORMATION
  Report Type: Spontaneous
  Country: RO (occurrence: RO)
  Receive Date: 20210312
  Receipt Date: 20210312
  Transmission Date: 20210420
  Serious: Yes (Life-Threatening, Hospitalization, Other)
  Sender: FDA-Public Use
  Company Number: RO-ALKEM LABORATORIES LIMITED-RO-ALKEM-2021-01093

PATIENT
  Age: 46 Year
  Sex: Male

DRUGS (12)
  1. TACROLIMUS. [Interacting]
     Active Substance: TACROLIMUS
     Dosage: 2 MILLIGRAM, QD
     Route: 048
     Dates: start: 20200407, end: 20200410
  2. TACROLIMUS. [Interacting]
     Active Substance: TACROLIMUS
     Indication: IMMUNOSUPPRESSANT DRUG THERAPY
     Dosage: 2.5 MILLIGRAM, QD
     Route: 048
     Dates: start: 201709, end: 20200407
  3. TACROLIMUS. [Interacting]
     Active Substance: TACROLIMUS
     Dosage: 1.5 MILLIGRAM, QD
     Route: 048
     Dates: start: 20200410, end: 20200412
  4. AMOXICILLIN (AS TRIHYDRATE) AND CLAVULANIC ACID (AS POTASSIUM) [Suspect]
     Active Substance: AMOXICILLIN\CLAVULANATE POTASSIUM
     Indication: PRODUCT USED FOR UNKNOWN INDICATION
     Dosage: 875/125 MG, BID
     Route: 065
  5. PREDNISONE. [Suspect]
     Active Substance: PREDNISONE
     Indication: IMMUNOSUPPRESSANT DRUG THERAPY
     Dosage: 5 MILLIGRAM, QD
     Route: 065
     Dates: start: 201709, end: 202004
  6. LOPINAVIR/RITONAVIR [Interacting]
     Active Substance: LOPINAVIR\RITONAVIR
     Indication: COVID-19 PNEUMONIA
     Dosage: 1 DOSAGE FORM, BID
     Route: 065
     Dates: start: 20200502
  7. MYCOPHENOLATE MOFETIL. [Suspect]
     Active Substance: MYCOPHENOLATE MOFETIL
     Dosage: 1080 MILLIGRAM, QD
     Route: 065
     Dates: start: 20200405, end: 20200407
  8. TACROLIMUS. [Interacting]
     Active Substance: TACROLIMUS
     Dosage: 1.5 MILLIGRAM, QD
     Route: 048
     Dates: start: 20200426, end: 20200428
  9. MYCOPHENOLATE MOFETIL. [Suspect]
     Active Substance: MYCOPHENOLATE MOFETIL
     Indication: IMMUNOSUPPRESSANT DRUG THERAPY
     Dosage: 720 MILLIGRAM, BID
     Route: 065
     Dates: start: 201709, end: 20200405
  10. MYCOPHENOLATE MOFETIL. [Suspect]
     Active Substance: MYCOPHENOLATE MOFETIL
     Dosage: 720 MILLIGRAM, QD
     Route: 065
     Dates: start: 20200407, end: 20200410
  11. TACROLIMUS. [Interacting]
     Active Substance: TACROLIMUS
     Dosage: 2.5 MILLIGRAM, QD
     Route: 048
     Dates: start: 20200428, end: 20200428
  12. BASILIXIMAB [Suspect]
     Active Substance: BASILIXIMAB
     Indication: IMMUNOSUPPRESSANT DRUG THERAPY
     Dosage: UNK
     Route: 065
     Dates: start: 201709, end: 201709

REACTIONS (14)
  - Thrombocytopenia [Recovered/Resolved]
  - Drug ineffective [Unknown]
  - Nephropathy [Recovered/Resolved]
  - Overdose [Unknown]
  - Acute kidney injury [Recovered/Resolved]
  - COVID-19 pneumonia [Recovered/Resolved]
  - Nephropathy toxic [Recovered/Resolved]
  - Hypokalaemia [Unknown]
  - Drug interaction [Unknown]
  - Dehydration [Recovered/Resolved]
  - Hypercoagulation [Recovered/Resolved]
  - Leukopenia [Unknown]
  - Renal tubular dysfunction [Recovered/Resolved]
  - Blood lactate dehydrogenase increased [Unknown]

NARRATIVE: CASE EVENT DATE: 202004
